FAERS Safety Report 18412921 (Version 1)
Quarter: 2020Q4

REPORT INFORMATION
  Report Type: Spontaneous
  Country: US (occurrence: US)
  Receive Date: 20201021
  Receipt Date: 20201021
  Transmission Date: 20210114
  Serious: Yes (Other)
  Sender: FDA-Public Use
  Company Number: US-GE HEALTHCARE LIFE SCIENCES-OSCN-PR-0611S-0360

PATIENT
  Sex: Female

DRUGS (5)
  1. OMNISCAN [Suspect]
     Active Substance: GADODIAMIDE
     Indication: ANGIOGRAM
     Dosage: .23 MILLIMOLE(S) PER KILOGRAM, SINGLE
     Route: 042
  2. OMNISCAN [Suspect]
     Active Substance: GADODIAMIDE
     Indication: MAGNETIC RESONANCE IMAGING HEART
     Dosage: UNK, SINGLE
     Route: 042
  3. MULTIHANCE [Suspect]
     Active Substance: GADOBENATE DIMEGLUMINE
     Indication: LIVER TRANSPLANT
     Dosage: .23 MILLIMOLE(S) PER KILOGRAM,
     Route: 042
  4. OMNISCAN [Suspect]
     Active Substance: GADODIAMIDE
     Indication: LIVER TRANSPLANT
  5. OMNISCAN [Suspect]
     Active Substance: GADODIAMIDE
     Indication: INTRACARDIAC MASS

REACTIONS (3)
  - Oedema [Unknown]
  - Skin hypertrophy [Unknown]
  - Nephrogenic systemic fibrosis [Unknown]

NARRATIVE: CASE EVENT DATE: 2006
